FAERS Safety Report 16784140 (Version 1)
Quarter: 2019Q3

REPORT INFORMATION
  Report Type: Spontaneous
  Country: DE (occurrence: DE)
  Receive Date: 20190909
  Receipt Date: 20190909
  Transmission Date: 20191005
  Serious: Yes (Other)
  Sender: FDA-Public Use
  Company Number: DE-ROCHE-2400600

PATIENT
  Age: 64 Year
  Sex: Male

DRUGS (11)
  1. MYCOPHENOLATE MOFETIL. [Suspect]
     Active Substance: MYCOPHENOLATE MOFETIL
     Route: 065
     Dates: start: 201607, end: 201610
  2. TACROLIMUS. [Suspect]
     Active Substance: TACROLIMUS
     Route: 065
     Dates: start: 201604
  3. PREDNISONE. [Suspect]
     Active Substance: PREDNISONE
     Indication: PROPHYLAXIS AGAINST TRANSPLANT REJECTION
     Route: 065
     Dates: start: 201604, end: 201607
  4. PREDNISONE. [Suspect]
     Active Substance: PREDNISONE
     Route: 065
  5. MYCOPHENOLATE MOFETIL. [Suspect]
     Active Substance: MYCOPHENOLATE MOFETIL
     Indication: PROPHYLAXIS AGAINST TRANSPLANT REJECTION
     Route: 065
     Dates: start: 201604, end: 201607
  6. IMMUNOGLOBULIN IV [Concomitant]
     Active Substance: HUMAN IMMUNOGLOBULIN G
  7. PREDNISONE. [Suspect]
     Active Substance: PREDNISONE
     Route: 065
     Dates: start: 201607
  8. TACROLIMUS. [Suspect]
     Active Substance: TACROLIMUS
     Indication: PROPHYLAXIS AGAINST TRANSPLANT REJECTION
     Dosage: TROUGH LEVEL 5-8 NG/ML
     Route: 065
  9. RITUXIMAB. [Suspect]
     Active Substance: RITUXIMAB
     Indication: FOCAL SEGMENTAL GLOMERULOSCLEROSIS
     Route: 065
     Dates: start: 201606
  10. RIBAVIRIN. [Suspect]
     Active Substance: RIBAVIRIN
     Indication: HEPATITIS E
     Route: 065
     Dates: start: 201709, end: 2017
  11. MYCOPHENOLATE MOFETIL. [Suspect]
     Active Substance: MYCOPHENOLATE MOFETIL
     Route: 065
     Dates: start: 201610

REACTIONS (4)
  - Anaemia [Unknown]
  - BK virus infection [Recovering/Resolving]
  - Hepatitis E [Recovered/Resolved]
  - Off label use [Unknown]

NARRATIVE: CASE EVENT DATE: 201607
